FAERS Safety Report 25478386 (Version 1)
Quarter: 2025Q2

REPORT INFORMATION
  Report Type: Spontaneous
  Country: CA (occurrence: CA)
  Receive Date: 20250625
  Receipt Date: 20250625
  Transmission Date: 20250717
  Serious: Yes (Other)
  Sender: TEVA
  Company Number: CA-TEVA-VS-3343745

PATIENT
  Age: 3 Year
  Sex: Male

DRUGS (3)
  1. METHOTREXATE SODIUM [Suspect]
     Active Substance: METHOTREXATE SODIUM
     Indication: B-cell type acute leukaemia
     Route: 042
  2. METHOTREXATE SODIUM [Suspect]
     Active Substance: METHOTREXATE SODIUM
     Indication: B-cell type acute leukaemia
     Route: 037
  3. METHOTREXATE SODIUM [Suspect]
     Active Substance: METHOTREXATE SODIUM
     Indication: B-cell type acute leukaemia
     Route: 048

REACTIONS (11)
  - Confusional state [Unknown]
  - Obsessive-compulsive disorder [Unknown]
  - Social problem [Unknown]
  - Tonic convulsion [Unknown]
  - Exhibitionism [Unknown]
  - Attention deficit hyperactivity disorder [Unknown]
  - Infantile spasms [Unknown]
  - Neurotoxicity [Unknown]
  - Oppositional defiant disorder [Unknown]
  - Aggression [Unknown]
  - Lennox-Gastaut syndrome [Unknown]
